FAERS Safety Report 5454460-8 (Version None)
Quarter: 2007Q3

REPORT INFORMATION
  Report Type: 
  Country: None (occurrence: None)
  Receive Date: 20070917
  Receipt Date: 20060926
  Transmission Date: 20080115
  Serious: No
  Sender: FDA-Public Use
  Company Number: US-ASTRAZENECA-2006UW18781

PATIENT
  Sex: Female
  Weight: 49 kg

DRUGS (5)
  1. SEROQUEL [Suspect]
     Indication: RESTLESS LEGS SYNDROME
     Route: 048
  2. LIPITOR [Concomitant]
  3. PROTONIX [Concomitant]
  4. FERROUS SULFATE TAB [Concomitant]
  5. METOPROLOL SUCCINATE [Concomitant]

REACTIONS (3)
  - ABNORMAL BEHAVIOUR [None]
  - HYPERSOMNIA [None]
  - MUSCULAR WEAKNESS [None]
